FAERS Safety Report 7427891-4 (Version None)
Quarter: 2011Q2

REPORT INFORMATION
  Report Type: 
  Country: None (occurrence: None)
  Receive Date: 20110413
  Receipt Date: 20110408
  Transmission Date: 20111010
  Serious: Yes (Hospitalization)
  Sender: FDA-Public Use
  Company Number: B0711654A

PATIENT
  Age: 40 Year
  Sex: Male

DRUGS (4)
  1. LOPINAVIR AND RITONAVIR [Suspect]
     Dosage: HIV INFECTION
  2. LAMIVUDINE [Suspect]
     Indication: HIV INFECTION
  3. TENOFOVIR DISOPROSIL FUMARATE (VIREAD) [Suspect]
     Indication: HIV INFECTION
  4. ZIDOVUDINE [Suspect]
     Indication: HIV INFECTION

REACTIONS (8)
  - ASTHENIA [None]
  - FATIGUE [None]
  - HYPERGAMMAGLOBULINAEMIA [None]
  - LYMPHADENOPATHY [None]
  - NAUSEA [None]
  - DECREASED APPETITE [None]
  - AUTOIMMUNE HEPATITIS [None]
  - HEPATOSPLENOMEGALY [None]
